FAERS Safety Report 12319519 (Version 1)
Quarter: 2016Q2

REPORT INFORMATION
  Report Type: Spontaneous
  Country: US (occurrence: US)
  Receive Date: 20160429
  Receipt Date: 20160429
  Transmission Date: 20160815
  Serious: Yes (Hospitalization)
  Sender: FDA-Public Use
  Company Number: US-ROCHE-1714950

PATIENT
  Age: 29 Year
  Sex: Female
  Weight: 58 kg

DRUGS (16)
  1. VALCYTE [Suspect]
     Active Substance: VALGANCICLOVIR HYDROCHLORIDE
     Indication: CYTOMEGALOVIRUS VIRAEMIA
     Route: 065
     Dates: end: 20160115
  2. PROGRAF [Suspect]
     Active Substance: TACROLIMUS\TACROLIMUS ANHYDROUS
     Indication: GRAFT VERSUS HOST DISEASE
     Dosage: TOTAL 2 MG IN MORNING AND 1.5 MG IN EVENING
     Route: 048
     Dates: start: 20151111
  3. PROGRAF [Suspect]
     Active Substance: TACROLIMUS\TACROLIMUS ANHYDROUS
     Route: 048
     Dates: start: 20151117
  4. ERGOCALCIFEROL. [Concomitant]
     Active Substance: ERGOCALCIFEROL
     Route: 065
     Dates: start: 20151221
  5. MELATONIN [Concomitant]
     Active Substance: MELATONIN
     Route: 065
  6. ATIVAN [Concomitant]
     Active Substance: LORAZEPAM
     Route: 065
     Dates: start: 20151130
  7. NEUPOGEN [Concomitant]
     Active Substance: FILGRASTIM
     Route: 065
     Dates: start: 20160116
  8. LISINOPRIL. [Concomitant]
     Active Substance: LISINOPRIL
     Route: 065
     Dates: start: 20151221
  9. BACTRIM [Concomitant]
     Active Substance: SULFAMETHOXAZOLE\TRIMETHOPRIM
     Dosage: 800-160 MG
     Route: 065
     Dates: start: 20151121
  10. VFEND [Concomitant]
     Active Substance: VORICONAZOLE
     Route: 065
  11. SEPTRA DS [Concomitant]
     Active Substance: SULFAMETHOXAZOLE\TRIMETHOPRIM
     Dosage: 800-160 MG
     Route: 065
     Dates: start: 20151121
  12. ACTIGALL [Concomitant]
     Active Substance: URSODIOL
     Route: 065
     Dates: start: 20151130
  13. TOPRAL [Concomitant]
     Active Substance: SULTOPRIDE HYDROCHLORIDE
     Route: 065
     Dates: start: 20151221
  14. VFEND [Concomitant]
     Active Substance: VORICONAZOLE
     Route: 065
     Dates: start: 20151221
  15. PREVACID [Concomitant]
     Active Substance: LANSOPRAZOLE
     Route: 065
     Dates: start: 20151130
  16. OXYCODONE [Concomitant]
     Active Substance: OXYCODONE

REACTIONS (1)
  - Subcutaneous abscess [Recovered/Resolved]

NARRATIVE: CASE EVENT DATE: 20160116
